FAERS Safety Report 25602037 (Version 3)
Quarter: 2025Q4

REPORT INFORMATION
  Report Type: Report from Study
  Country: US (occurrence: US)
  Receive Date: 20250724
  Receipt Date: 20251117
  Transmission Date: 20260118
  Serious: Yes (Other)
  Sender: AGIOS PHARMACEUTICALS
  Company Number: US-AGIOS-2507US04379

PATIENT
  Age: 52 Year
  Sex: Female

DRUGS (1)
  1. MITAPIVAT [Suspect]
     Active Substance: MITAPIVAT
     Indication: Pyruvate kinase deficiency anaemia
     Dosage: 50 MILLIGRAM, BID
     Route: 048
     Dates: start: 20250612

REACTIONS (2)
  - Jaundice [Recovered/Resolved]
  - Haemoglobin decreased [Recovered/Resolved]
